FAERS Safety Report 6274561-4 (Version None)
Quarter: 2009Q3

REPORT INFORMATION
  Report Type: 
  Country: None (occurrence: None)
  Receive Date: 20090716
  Receipt Date: 20090709
  Transmission Date: 20100115
  Serious: Yes (Disabling)
  Sender: FDA-Public Use
  Company Number: 2009008343

PATIENT
  Age: 82 Year
  Sex: Female
  Weight: 57.6068 kg

DRUGS (3)
  1. TREANDA [Suspect]
     Indication: CHRONIC LYMPHOCYTIC LEUKAEMIA
     Dosage: INTRAVENOUS
     Route: 042
     Dates: start: 20080801
  2. ACYCLOVIR [Concomitant]
  3. BACTRIM [Concomitant]

REACTIONS (2)
  - ABASIA [None]
  - FATIGUE [None]
